FAERS Safety Report 24313129 (Version 2)
Quarter: 2024Q3

REPORT INFORMATION
  Report Type: Spontaneous
  Country: PR (occurrence: PR)
  Receive Date: 20240912
  Receipt Date: 20240916
  Transmission Date: 20241016
  Serious: No
  Sender: ABBVIE
  Company Number: PR-ABBVIE-5906556

PATIENT
  Sex: Female

DRUGS (2)
  1. RINVOQ [Suspect]
     Active Substance: UPADACITINIB
     Indication: Product used for unknown indication
     Route: 048
     Dates: start: 2024
  2. RINVOQ [Suspect]
     Active Substance: UPADACITINIB
     Indication: Product used for unknown indication
     Route: 048
     Dates: start: 202403

REACTIONS (5)
  - Gastrointestinal disorder [Unknown]
  - Off label use [Unknown]
  - Overweight [Unknown]
  - Drug ineffective [Unknown]
  - C-reactive protein increased [Unknown]
